FAERS Safety Report 9563621 (Version 3)
Quarter: 2013Q4

REPORT INFORMATION
  Report Type: Spontaneous
  Country: NL (occurrence: None)
  Receive Date: 20130926
  Receipt Date: 20131021
  Transmission Date: 20140711
  Serious: Yes (Hospitalization)
  Sender: FDA-Public Use
  Company Number: 2013P1019510

PATIENT
  Age: 68 Year
  Sex: Male

DRUGS (10)
  1. PARNATE [Suspect]
     Indication: MAJOR DEPRESSION
  2. TRAZODONE [Suspect]
     Indication: SLEEP DISORDER
  3. EMSELEX [Suspect]
  4. LORAZEPAM [Concomitant]
  5. LIPITOR (ATORVASTATIN) [Concomitant]
  6. ASCAL CARDIO [Concomitant]
  7. CALCI-CHEW D3 [Concomitant]
  8. METOPROLOL [Concomitant]
  9. AMLODIPINE [Concomitant]
  10. ISOSORBIDE DINITRATE [Concomitant]

REACTIONS (4)
  - Serotonin syndrome [None]
  - Drug interaction [None]
  - Blood creatine phosphokinase increased [None]
  - Parkinson^s disease [None]
